FAERS Safety Report 4863883-7 (Version None)
Quarter: 2005Q4

REPORT INFORMATION
  Report Type: 
  Country: None (occurrence: None)
  Receive Date: 20051219
  Receipt Date: 20051219
  Transmission Date: 20060501
  Serious: Yes (Other)
  Sender: FDA-Public Use
  Company Number: None

PATIENT
  Sex: Male

DRUGS (1)
  1. FLUROX [Suspect]
     Indication: OPHTHALMOLOGICAL EXAMINATION
     Dosage: ONE DROP OU   ONCE   EYES
     Dates: start: 20051205

REACTIONS (6)
  - CHEMICAL BURNS OF EYE [None]
  - ERYTHEMA OF EYELID [None]
  - EYELID OEDEMA [None]
  - INSTILLATION SITE PAIN [None]
  - INSTILLATION SITE REACTION [None]
  - KERATITIS [None]
